FAERS Safety Report 11359520 (Version 1)
Quarter: 2015Q3

REPORT INFORMATION
  Report Type: Spontaneous
  Country: US (occurrence: None)
  Receive Date: 20150807
  Receipt Date: 20150807
  Transmission Date: 20151125
  Serious: Yes (Disabling)
  Sender: FDA-Public Use
  Company Number: None

PATIENT
  Age: 77 Year
  Sex: Female
  Weight: 160 kg

DRUGS (7)
  1. CLONIDINE. [Concomitant]
     Active Substance: CLONIDINE
  2. ASPIRIN. [Concomitant]
     Active Substance: ASPIRIN
  3. LOSARTAN. [Concomitant]
     Active Substance: LOSARTAN
  4. CORTISONE [Suspect]
     Active Substance: CORTISONE\HYDROCORTISONE
  5. HYDROCHLOROTHIAZIDE. [Concomitant]
     Active Substance: HYDROCHLOROTHIAZIDE
  6. LORAZAPAM [Concomitant]
     Active Substance: LORAZEPAM
  7. GABAPENTIN. [Concomitant]
     Active Substance: GABAPENTIN

REACTIONS (12)
  - Headache [None]
  - Pyrexia [None]
  - Abdominal distension [None]
  - Muscle spasms [None]
  - Heart rate irregular [None]
  - Flushing [None]
  - Chest discomfort [None]
  - Cough [None]
  - Insomnia [None]
  - Dysgeusia [None]
  - Oral mucosal exfoliation [None]
  - Chills [None]

NARRATIVE: CASE EVENT DATE: 20150610
